FAERS Safety Report 4380842-1 (Version None)
Quarter: 2004Q2

REPORT INFORMATION
  Report Type: 
  Country: None (occurrence: None)
  Receive Date: 20040616
  Receipt Date: 20040607
  Transmission Date: 20050107
  Serious: Yes (Other)
  Sender: FDA-Public Use
  Company Number: 2004-06-0285

PATIENT
  Sex: Female

DRUGS (1)
  1. ELOCON [Suspect]
     Dosage: BID TOP-DERM
     Route: 061

REACTIONS (1)
  - MANIA [None]
